FAERS Safety Report 17486526 (Version 2)
Quarter: 2021Q2

REPORT INFORMATION
  Report Type: Spontaneous
  Country: US (occurrence: US)
  Receive Date: 20200303
  Receipt Date: 20210602
  Transmission Date: 20210716
  Serious: Yes (Death, Other)
  Sender: FDA-Public Use
  Company Number: US-ASTRAZENECA-2020SE29894

PATIENT
  Age: 51 Year
  Sex: Female

DRUGS (51)
  1. FERROUS SULFATE. [Concomitant]
     Active Substance: FERROUS SULFATE
  2. CYMBALTA [Concomitant]
     Active Substance: DULOXETINE HYDROCHLORIDE
  3. VERAMYST [Concomitant]
     Active Substance: FLUTICASONE FUROATE
  4. NICOTINE. [Concomitant]
     Active Substance: NICOTINE
  5. CEPHALEXIN. [Concomitant]
     Active Substance: CEPHALEXIN
  6. DURAGESIC [Concomitant]
     Active Substance: FENTANYL
  7. IBUPROFEN. [Concomitant]
     Active Substance: IBUPROFEN
  8. TRIAMCINOLONE [Concomitant]
     Active Substance: TRIAMCINOLONE
  9. NEXIUM [Suspect]
     Active Substance: ESOMEPRAZOLE MAGNESIUM
     Route: 048
     Dates: start: 201102, end: 201602
  10. PREVACID [Suspect]
     Active Substance: LANSOPRAZOLE
     Route: 065
     Dates: start: 200701, end: 201705
  11. CYCLOBENZAPRINE. [Concomitant]
     Active Substance: CYCLOBENZAPRINE
  12. MIRTAZAPINE. [Concomitant]
     Active Substance: MIRTAZAPINE
  13. DIPHENHYDRAMINE. [Concomitant]
     Active Substance: DIPHENHYDRAMINE
  14. PENICILLIN [Concomitant]
     Active Substance: PENICILLIN
  15. MELOXICAM. [Concomitant]
     Active Substance: MELOXICAM
  16. BACLOFEN. [Concomitant]
     Active Substance: BACLOFEN
  17. PRAZOSIN. [Concomitant]
     Active Substance: PRAZOSIN
  18. FENTANYL. [Concomitant]
     Active Substance: FENTANYL
  19. AMITRIPTYLINE [Concomitant]
     Active Substance: AMITRIPTYLINE
  20. FLUCONAZOLE. [Concomitant]
     Active Substance: FLUCONAZOLE
  21. METHADONE [Concomitant]
     Active Substance: METHADONE HYDROCHLORIDE
  22. NYSTATIN. [Concomitant]
     Active Substance: NYSTATIN
  23. NEXIUM [Suspect]
     Active Substance: ESOMEPRAZOLE MAGNESIUM
     Route: 048
     Dates: start: 200701, end: 201705
  24. CIPROFLOXACIN. [Concomitant]
     Active Substance: CIPROFLOXACIN
  25. KLOR?CON [Concomitant]
     Active Substance: POTASSIUM CHLORIDE
  26. TUMS [Concomitant]
     Active Substance: CALCIUM CARBONATE
  27. LIDODERM [Concomitant]
     Active Substance: LIDOCAINE
  28. LORAZEPAM. [Concomitant]
     Active Substance: LORAZEPAM
  29. AMOXICILLIN. [Concomitant]
     Active Substance: AMOXICILLIN
  30. ESTRADIOL. [Concomitant]
     Active Substance: ESTRADIOL
  31. VITAMIN D3 [Concomitant]
     Active Substance: CHOLECALCIFEROL
  32. ALENDRONATE [Concomitant]
     Active Substance: ALENDRONATE SODIUM
  33. CLOTRIMAZOLE. [Concomitant]
     Active Substance: CLOTRIMAZOLE
  34. NASONEX [Concomitant]
     Active Substance: MOMETASONE FUROATE
  35. PREVIDENT [Concomitant]
     Active Substance: SODIUM FLUORIDE
  36. METHOCARBAMOL. [Concomitant]
     Active Substance: METHOCARBAMOL
  37. AZITHROMYCIN ANHYDROUS. [Concomitant]
     Active Substance: AZITHROMYCIN ANHYDROUS
  38. MUPIROCIN. [Concomitant]
     Active Substance: MUPIROCIN
  39. ONDANSETRON [Concomitant]
     Active Substance: ONDANSETRON
  40. TRAMADOL. [Concomitant]
     Active Substance: TRAMADOL
  41. HYDROCODONE BITARTRATE AND ACETAMINOPHEN [Concomitant]
     Active Substance: ACETAMINOPHEN\HYDROCODONE BITARTRATE
  42. VAGISIL ANTI ITCH ORIGINAL STRENGTH [Concomitant]
     Active Substance: BENZOCAINE\RESORCINOL
  43. HYDROXYZINE [Concomitant]
     Active Substance: HYDROXYZINE HYDROCHLORIDE
  44. PROAIR HFA [Concomitant]
     Active Substance: ALBUTEROL SULFATE
  45. FLUVIRIN NOS [Concomitant]
     Active Substance: INFLUENZA VIRUS VACCINE
  46. PREVACID [Suspect]
     Active Substance: LANSOPRAZOLE
     Route: 065
     Dates: start: 200701, end: 201102
  47. CYANOCOBALAMIN. [Concomitant]
     Active Substance: CYANOCOBALAMIN
  48. GABAPENTIN. [Concomitant]
     Active Substance: GABAPENTIN
  49. DOXYCYCLINE. [Concomitant]
     Active Substance: DOXYCYCLINE
  50. ZIPRASIDONE. [Concomitant]
     Active Substance: ZIPRASIDONE
  51. PNEUMOVAX 23 [Concomitant]
     Active Substance: PNEUMOCOCCAL VACCINE, POLYVALENT 23

REACTIONS (1)
  - Chronic kidney disease [Fatal]

NARRATIVE: CASE EVENT DATE: 2015
